FAERS Safety Report 6563425-4 (Version None)
Quarter: 2010Q1

REPORT INFORMATION
  Report Type: 
  Country: None (occurrence: None)
  Receive Date: 20100130
  Receipt Date: 20091218
  Transmission Date: 20100710
  Serious: No
  Sender: FDA-Public Use
  Company Number: US-ABBOTT-09P-163-0615309-00

PATIENT
  Sex: Female

DRUGS (1)
  1. HUMIRA [Suspect]
     Indication: CROHN'S DISEASE
     Dosage: 80 MG LOADING DOSE
     Dates: start: 20091204, end: 20091204

REACTIONS (1)
  - WRONG TECHNIQUE IN DRUG USAGE PROCESS [None]
